FAERS Safety Report 23648830 (Version 1)
Quarter: 2024Q1

REPORT INFORMATION
  Report Type: Spontaneous
  Country: US (occurrence: US)
  Receive Date: 20240319
  Receipt Date: 20240319
  Transmission Date: 20240410
  Serious: No
  Sender: FDA-Public Use
  Company Number: US-MYLANLABS-2024M1020980

PATIENT
  Sex: Female
  Weight: 79.38 kg

DRUGS (2)
  1. TYRVAYA [Suspect]
     Active Substance: VARENICLINE TARTRATE
     Indication: Dry eye
     Dosage: UNK
     Route: 045
     Dates: start: 20240223
  2. TYRVAYA [Suspect]
     Active Substance: VARENICLINE TARTRATE
     Dosage: QD (ONE SPRAY TO EACH NOSTRIL)
     Route: 045
     Dates: start: 2024

REACTIONS (5)
  - Hypersensitivity [Unknown]
  - Sneezing [Not Recovered/Not Resolved]
  - Flushing [Unknown]
  - Wrong technique in product usage process [Unknown]
  - Off label use [Unknown]

NARRATIVE: CASE EVENT DATE: 20240101
